FAERS Safety Report 7001053-7 (Version None)
Quarter: 2010Q3

REPORT INFORMATION
  Report Type: 
  Country: None (occurrence: None)
  Receive Date: 20100920
  Receipt Date: 20070921
  Transmission Date: 20110219
  Serious: Yes (Other)
  Sender: FDA-Public Use
  Company Number: US-ASTRAZENECA-2006UW26661

PATIENT
  Sex: Female
  Weight: 61.7 kg

DRUGS (4)
  1. SEROQUEL [Suspect]
     Route: 048
     Dates: start: 20030101
  2. ABILIFY [Concomitant]
  3. RISPERDAL [Concomitant]
  4. ZYPREXA [Concomitant]
     Dates: start: 20060201

REACTIONS (1)
  - PANCREATITIS [None]
